FAERS Safety Report 5527898-8 (Version None)
Quarter: 2007Q4

REPORT INFORMATION
  Report Type: 
  Country: None (occurrence: None)
  Receive Date: 20071126
  Receipt Date: 20071126
  Transmission Date: 20080405
  Serious: Yes (Life-Threatening)
  Sender: FDA-Public Use
  Company Number: None

PATIENT
  Age: 49 Year
  Sex: Female
  Weight: 106.5953 kg

DRUGS (1)
  1. CHANTIX [Suspect]
     Dosage: 1 TABLET BID PO
     Route: 048
     Dates: start: 20071020, end: 20071123

REACTIONS (3)
  - DISORIENTATION [None]
  - MOOD ALTERED [None]
  - SOMNAMBULISM [None]
